FAERS Safety Report 11939437 (Version 3)
Quarter: 2016Q1

REPORT INFORMATION
  Report Type: Spontaneous
  Country: JP (occurrence: JP)
  Receive Date: 20160122
  Receipt Date: 20160304
  Transmission Date: 20160526
  Serious: Yes (Hospitalization)
  Sender: FDA-Public Use
  Company Number: JP-ELI_LILLY_AND_COMPANY-JP201601005056

PATIENT
  Age: 69 Year
  Sex: Male
  Weight: 59.9 kg

DRUGS (3)
  1. PACLITAXEL. [Suspect]
     Active Substance: PACLITAXEL
     Indication: GASTRIC CANCER RECURRENT
     Dosage: 130 MG, OTHER
     Route: 042
     Dates: start: 20151113, end: 20151120
  2. PACLITAXEL. [Suspect]
     Active Substance: PACLITAXEL
     Dosage: 130 MG, OTHER
     Route: 042
     Dates: start: 20151218, end: 20151225
  3. CYRAMZA [Suspect]
     Active Substance: RAMUCIRUMAB
     Indication: GASTRIC CANCER RECURRENT
     Dosage: 480 MG, OTHER
     Route: 042
     Dates: start: 20151113, end: 20151113

REACTIONS (1)
  - Pneumothorax [Recovered/Resolved]

NARRATIVE: CASE EVENT DATE: 20151122
